FAERS Safety Report 11389974 (Version 4)
Quarter: 2016Q1

REPORT INFORMATION
  Report Type: Report from Study
  Country: US (occurrence: US)
  Receive Date: 20150818
  Receipt Date: 20160331
  Transmission Date: 20160525
  Serious: No
  Sender: FDA-Public Use
  Company Number: PHEH2015US008786

PATIENT
  Sex: Female
  Weight: 68.3 kg

DRUGS (2)
  1. BOTOX [Suspect]
     Active Substance: ONABOTULINUMTOXINA
     Indication: PRODUCT USED FOR UNKNOWN INDICATION
     Dosage: UNK
     Route: 065
  2. GILENYA [Suspect]
     Active Substance: FINGOLIMOD HYDROCHLORIDE
     Indication: MULTIPLE SCLEROSIS
     Dosage: 0.5 MG, QD
     Route: 048
     Dates: start: 20150325

REACTIONS (9)
  - White blood cell count decreased [Recovering/Resolving]
  - Chest discomfort [Unknown]
  - Agitation [Not Recovered/Not Resolved]
  - Eye discharge [Recovered/Resolved]
  - Herpes zoster [Recovering/Resolving]
  - Platelet count decreased [Recovering/Resolving]
  - Head discomfort [Unknown]
  - Pyrexia [Recovered/Resolved]
  - Nasopharyngitis [Recovered/Resolved]
